FAERS Safety Report 23690113 (Version 1)
Quarter: 2024Q2

REPORT INFORMATION
  Report Type: Spontaneous
  Country: DE (occurrence: DE)
  Receive Date: 20240401
  Receipt Date: 20240401
  Transmission Date: 20240716
  Serious: Yes (Other)
  Sender: FDA-Public Use
  Company Number: DE-EMA-DD-20240315-7482677-154346

PATIENT
  Age: 61 Year
  Sex: Female
  Weight: 84 kg

DRUGS (20)
  1. FERRLECIT [Suspect]
     Active Substance: SODIUM FERRIC GLUCONATE COMPLEX
     Indication: Product used for unknown indication
     Dosage: 62.5 MG, QOW (ADMINISTRATION DURING DIALYSIS)
     Route: 042
  2. EPOETIN BETA [Suspect]
     Active Substance: ERYTHROPOIETIN
     Indication: Product used for unknown indication
     Dosage: 4000 IU, QW
     Route: 048
  3. TORSEMIDE [Suspect]
     Active Substance: TORSEMIDE
     Indication: Product used for unknown indication
     Dosage: 200 MG, QD (INTAKE IN THE MORNING AND IN THE AFTERNOON)
  4. PALLADONE [Suspect]
     Active Substance: HYDROMORPHONE HYDROCHLORIDE
     Indication: Product used for unknown indication
     Dosage: 1.3 MG, QD (WHEN NEEDED )
     Route: 048
  5. ASPIRIN [Suspect]
     Active Substance: ASPIRIN
     Indication: Product used for unknown indication
     Dosage: 100 MG, QD (TAKE IN THE MORNING)
     Route: 048
  6. CALCIUM CARBONATE [Suspect]
     Active Substance: CALCIUM CARBONATE
     Indication: Product used for unknown indication
     Dosage: 2000 MG, QD
     Route: 048
  7. LEVOTHYROXINE SODIUM [Suspect]
     Active Substance: LEVOTHYROXINE SODIUM
     Indication: Product used for unknown indication
     Dosage: 200 UG, QD (TAKE IN THE MORNING)
     Route: 048
  8. METOPROLOL [Suspect]
     Active Substance: METOPROLOL
     Indication: Product used for unknown indication
     Dosage: 95 MG, PRN
  9. CANDESARTAN CILEXETIL [Suspect]
     Active Substance: CANDESARTAN CILEXETIL
     Indication: Product used for unknown indication
     Dosage: 8 MG, QD (TAKE IN THE MORNING)
     Route: 048
  10. CHOLECALCIFEROL [Suspect]
     Active Substance: CHOLECALCIFEROL
     Indication: Product used for unknown indication
     Dosage: 20000 IU
     Route: 048
  11. CARGLUMIC ACID [Suspect]
     Active Substance: CARGLUMIC ACID
     Indication: Product used for unknown indication
     Dosage: 14.9 G (SUNDAYS AND MONDAYS, 1 SACHET)
  12. LYRICA [Suspect]
     Active Substance: PREGABALIN
     Indication: Product used for unknown indication
     Dosage: 75 MG, QD (TAKE IN THE AFTERNOON)
     Route: 048
  13. REPAGLINIDE [Suspect]
     Active Substance: REPAGLINIDE
     Indication: Product used for unknown indication
     Dosage: 4 MG, QD (TAKE 2MG IN THE MORNING AND 2MG IN THE AFTERNOON)
     Route: 048
  14. QUETIAPINE [Suspect]
     Active Substance: QUETIAPINE
     Indication: Product used for unknown indication
     Dosage: 25 MG, PRN
     Route: 048
  15. LACTULOSE [Suspect]
     Active Substance: LACTULOSE
     Indication: Product used for unknown indication
     Dosage: UNK, PRN
  16. PALLADONE [Suspect]
     Active Substance: HYDROMORPHONE HYDROCHLORIDE
     Indication: Product used for unknown indication
     Dosage: 8 MG, QD [4 MG, 2X/DAY (TAKE IN THE MORNING AND IN THE AFTERNOON)]
  17. SEVELAMER CARBONATE [Suspect]
     Active Substance: SEVELAMER CARBONATE
     Indication: Product used for unknown indication
     Dosage: 4000 MG, QD (DOSAGE SCHEME 2-2-1)
     Route: 048
  18. DIHYDROCODEINE THIOCYANATE [Suspect]
     Active Substance: DIHYDROCODEINE THIOCYANATE
     Indication: Product used for unknown indication
     Dosage: 20 DROP
     Route: 048
  19. PANTOPRAZOLE SODIUM [Suspect]
     Active Substance: PANTOPRAZOLE SODIUM
     Indication: Product used for unknown indication
     Dosage: 20 MG, PRN
     Route: 048
  20. ZINC OROTATE [Suspect]
     Active Substance: ZINC OROTATE
     Indication: Product used for unknown indication
     Dosage: 40 MG, QD (TAKE IN THE MORNING)
     Route: 048

REACTIONS (2)
  - Rash [Recovering/Resolving]
  - Pruritus [Recovering/Resolving]
